FAERS Safety Report 11710280 (Version 2)
Quarter: 2015Q4

REPORT INFORMATION
  Report Type: Spontaneous
  Country: US (occurrence: US)
  Receive Date: 20151104
  Receipt Date: 20151110
  Transmission Date: 20160304
  Serious: No
  Sender: FDA-Public Use
  Company Number: US-ELI_LILLY_AND_COMPANY-US201108000398

PATIENT
  Age: 67 Year
  Sex: Female

DRUGS (4)
  1. FORTEO [Suspect]
     Active Substance: TERIPARATIDE
     Dosage: 20 UG, QD
     Dates: end: 201112
  2. FORTEO [Suspect]
     Active Substance: TERIPARATIDE
     Dosage: 20 UG, QD
     Route: 065
  3. FORTEO [Suspect]
     Active Substance: TERIPARATIDE
     Indication: OSTEOPOROSIS
     Dosage: 20 UG, QD
     Route: 065
     Dates: start: 20110723
  4. FORTEO [Suspect]
     Active Substance: TERIPARATIDE
     Dosage: 20 UG, QD
     Route: 065
     Dates: start: 201111

REACTIONS (16)
  - Contusion [Unknown]
  - Blood calcium increased [Unknown]
  - Paranasal sinus hypersecretion [Unknown]
  - Mass [Unknown]
  - Pain in extremity [Recovered/Resolved]
  - Fatigue [Not Recovered/Not Resolved]
  - Flatulence [Not Recovered/Not Resolved]
  - Hypoaesthesia [Recovered/Resolved]
  - Injection site erythema [Unknown]
  - Asthenia [Not Recovered/Not Resolved]
  - Nausea [Unknown]
  - Eructation [Unknown]
  - Fear [Unknown]
  - Injection site pain [Unknown]
  - Injection site mass [Recovered/Resolved]
  - Injection site bruising [Recovered/Resolved]

NARRATIVE: CASE EVENT DATE: 201111
